FAERS Safety Report 21149407 (Version 10)
Quarter: 2023Q4

REPORT INFORMATION
  Report Type: Report from Study
  Country: US (occurrence: US)
  Receive Date: 20220729
  Receipt Date: 20231211
  Transmission Date: 20240109
  Serious: No
  Sender: FDA-Public Use
  Company Number: US-NOVARTISTESTPH-NVSC2022US172210

PATIENT
  Age: 38 Year
  Sex: Male

DRUGS (2)
  1. KESIMPTA [Suspect]
     Active Substance: OFATUMUMAB
     Indication: Multiple sclerosis
     Dosage: 20 MG, QMO
     Route: 058
  2. KESIMPTA [Suspect]
     Active Substance: OFATUMUMAB
     Dosage: UNK, QMO
     Route: 058
     Dates: start: 202204

REACTIONS (5)
  - Fatigue [Not Recovered/Not Resolved]
  - COVID-19 [Unknown]
  - Alcohol intolerance [Unknown]
  - Alcoholic hangover [Unknown]
  - Headache [Unknown]

NARRATIVE: CASE EVENT DATE: 20220301
